FAERS Safety Report 23913793 (Version 3)
Quarter: 2024Q2

REPORT INFORMATION
  Report Type: Report from Study
  Country: IQ (occurrence: IQ)
  Receive Date: 20240529
  Receipt Date: 20240611
  Transmission Date: 20240716
  Serious: No
  Sender: FDA-Public Use
  Company Number: IQ-BAYER-2024A076778

PATIENT
  Age: 70 Year
  Sex: Male

DRUGS (2)
  1. EYLEA [Suspect]
     Active Substance: AFLIBERCEPT
     Indication: Diabetic retinal oedema
     Dosage: UNK, Q1MON, 22, INJECT, SOL FOR INJ, 40 MG/ML
     Dates: start: 202201
  2. EYLEA [Suspect]
     Active Substance: AFLIBERCEPT
     Dosage: UNK, SOLUTION FOR INJECTION, 40 MG/ML
     Dates: start: 20240525, end: 20240525

REACTIONS (2)
  - Visual impairment [Not Recovered/Not Resolved]
  - Injection site erythema [Not Recovered/Not Resolved]

NARRATIVE: CASE EVENT DATE: 20240525
